FAERS Safety Report 10241220 (Version 2)
Quarter: 2014Q2

REPORT INFORMATION
  Report Type: Report from Study
  Country: AU (occurrence: AU)
  Receive Date: 20140617
  Receipt Date: 20140617
  Transmission Date: 20141212
  Serious: Yes (Other)
  Sender: FDA-Public Use
  Company Number: AU-BAYER-2013-068387

PATIENT
  Age: 47 Year
  Sex: Male

DRUGS (1)
  1. BETAFERON [Suspect]
     Indication: MULTIPLE SCLEROSIS
     Dosage: 250 ?G/ML, QOD
     Route: 058
     Dates: start: 19960101

REACTIONS (17)
  - Crohn^s disease [Unknown]
  - Gastrointestinal pain [Unknown]
  - Headache [Unknown]
  - Pain [Unknown]
  - Feeling abnormal [Unknown]
  - Gait disturbance [Unknown]
  - Mobility decreased [Unknown]
  - Hypoaesthesia [Unknown]
  - Injection site pruritus [Not Recovered/Not Resolved]
  - Injection site scab [Not Recovered/Not Resolved]
  - Pre-existing condition improved [Unknown]
  - Vitamin B complex deficiency [Unknown]
  - Vision blurred [Unknown]
  - Hearing impaired [Unknown]
  - Influenza like illness [Recovering/Resolving]
  - Pain [Recovering/Resolving]
  - Injection site mass [Recovering/Resolving]
